FAERS Safety Report 8956754 (Version 2)
Quarter: 2013Q3

REPORT INFORMATION
  Report Type: Spontaneous
  Country: US (occurrence: US)
  Receive Date: 20121211
  Receipt Date: 20130826
  Transmission Date: 20140515
  Serious: No
  Sender: FDA-Public Use
  Company Number: US-009507513-1212USA001291

PATIENT
  Age: 21 Year
  Sex: Female
  Weight: 59.41 kg

DRUGS (1)
  1. IMPLANON [Suspect]
     Indication: CONTRACEPTION
     Dosage: 1 ROD
     Route: 059
     Dates: start: 20090701

REACTIONS (6)
  - Injection site pain [Unknown]
  - Incorrect drug administration duration [Not Recovered/Not Resolved]
  - Complication of device removal [Not Recovered/Not Resolved]
  - Implant site fibrosis [Not Recovered/Not Resolved]
  - Device dislocation [Not Recovered/Not Resolved]
  - Device deployment issue [Not Recovered/Not Resolved]
